FAERS Safety Report 9329818 (Version 1)
Quarter: 2013Q2

REPORT INFORMATION
  Report Type: Spontaneous
  Country: US (occurrence: None)
  Receive Date: 20130531
  Receipt Date: 20130531
  Transmission Date: 20140414
  Serious: Yes (Hospitalization)
  Sender: FDA-Public Use
  Company Number: FK201301674

PATIENT
  Age: 4 Year
  Sex: Female

DRUGS (4)
  1. VALPROATE SODIUM (VALPROATE SODIUM) [Suspect]
     Indication: CONVULSION
  2. LACOSAMIDE [Suspect]
     Indication: CONVULSION
  3. CARBAMAZEPINE (CARBAMAZEPINE) [Concomitant]
  4. OXCARBAZEPINE (OXCARBAZEPINE) TABLET, 300MG [Concomitant]

REACTIONS (12)
  - Drug interaction [None]
  - Hyperammonaemic encephalopathy [None]
  - Bone marrow failure [None]
  - Decreased appetite [None]
  - Dizziness [None]
  - Gait disturbance [None]
  - Somnolence [None]
  - Convulsion [None]
  - Leukopenia [None]
  - Thrombocytopenia [None]
  - Toxicity to various agents [None]
  - Drug level increased [None]
